FAERS Safety Report 8190628-8 (Version None)
Quarter: 2012Q1

REPORT INFORMATION
  Report Type: 
  Country: None (occurrence: None)
  Receive Date: 20120307
  Receipt Date: 20120228
  Transmission Date: 20120608
  Serious: Yes (Hospitalization)
  Sender: FDA-Public Use
  Company Number: US-AMGEN-USASP2012013087

PATIENT
  Age: 66 Year
  Sex: Female

DRUGS (2)
  1. TREXALL [Concomitant]
     Dosage: 8 MG, UNK
  2. ENBREL [Suspect]
     Indication: RHEUMATOID ARTHRITIS
     Dosage: 50 MG, QWK
     Dates: start: 20080125

REACTIONS (4)
  - INCISION SITE COMPLICATION [None]
  - STAPHYLOCOCCAL INFECTION [None]
  - INTESTINAL POLYP [None]
  - CEREBROVASCULAR ACCIDENT [None]
